FAERS Safety Report 6348500-1 (Version None)
Quarter: 2009Q3

REPORT INFORMATION
  Report Type: 
  Country: None (occurrence: None)
  Receive Date: 20090911
  Receipt Date: 20090904
  Transmission Date: 20100115
  Serious: Yes (Life-Threatening, Hospitalization, Other)
  Sender: FDA-Public Use
  Company Number: SE-CELGENEUS-150-20785-09090323

PATIENT
  Sex: Female
  Weight: 67 kg

DRUGS (10)
  1. THALIDOMIDE [Suspect]
     Indication: MULTIPLE MYELOMA
     Route: 048
     Dates: start: 20090805, end: 20090903
  2. ALLOPURINOL [Suspect]
     Indication: PROPHYLAXIS
     Route: 048
     Dates: start: 20090805, end: 20090903
  3. INJ FRAGMIN [Concomitant]
     Indication: ANTICOAGULANT THERAPY
     Dosage: 1500 IE
     Route: 058
     Dates: start: 20090625
  4. PAMIDRONATE DISODIUM [Concomitant]
     Route: 051
     Dates: start: 20081027
  5. BEHEPAN [Concomitant]
     Indication: VITAMIN B12 DEFICIENCY
     Route: 048
     Dates: start: 20081003
  6. TENORMIN [Concomitant]
     Indication: HYPERTENSION
     Route: 048
     Dates: start: 20080805
  7. AZOPT [Concomitant]
     Indication: GLAUCOMA
     Route: 047
     Dates: start: 20081003
  8. XALCOM [Concomitant]
     Indication: GLAUCOMA
     Route: 047
     Dates: start: 20080902
  9. ALVEDON [Concomitant]
     Indication: PAIN
     Route: 048
     Dates: start: 20080417
  10. HEPARIN LMW [Concomitant]
     Indication: PROPHYLAXIS
     Route: 065

REACTIONS (5)
  - ANAEMIA [None]
  - DIZZINESS [None]
  - FATIGUE [None]
  - GASTROINTESTINAL MOTILITY DISORDER [None]
  - RASH [None]
